FAERS Safety Report 4716505-X (Version None)
Quarter: 2005Q3

REPORT INFORMATION
  Report Type: 
  Country: None (occurrence: None)
  Receive Date: 20050719
  Receipt Date: 20050630
  Transmission Date: 20060218
  Serious: Yes (Other)
  Sender: FDA-Public Use
  Company Number: US-BRISTOL-MYERS SQUIBB COMPANY-13021506

PATIENT
  Age: 59 Year
  Sex: Female

DRUGS (6)
  1. CYCLOPHOSPHAMIDE [Suspect]
     Indication: BREAST CANCER
  2. METHOTREXATE [Suspect]
     Indication: BREAST CANCER
  3. TAMOXIFEN CITRATE [Suspect]
  4. FLUOROURACIL [Suspect]
     Indication: BREAST CANCER
  5. TAXOTERE [Suspect]
     Indication: BREAST CANCER
     Route: 042
  6. DEXAMETHASONE [Concomitant]

REACTIONS (1)
  - SCLERODERMA [None]
